FAERS Safety Report 10003763 (Version 2)
Quarter: 2014Q1

REPORT INFORMATION
  Report Type: Spontaneous
  Country: PR (occurrence: PR)
  Receive Date: 20140312
  Receipt Date: 20140312
  Transmission Date: 20141002
  Serious: No
  Sender: FDA-Public Use
  Company Number: PR-BAXTER-2014BAX010728

PATIENT
  Sex: 0

DRUGS (7)
  1. 70% DEXTROSE INJECTION USP [Suspect]
     Indication: PARENTERAL NUTRITION
     Route: 065
     Dates: start: 20140213
  2. POTASSIUM CHLORIDE 0.4MEQ/ML [Suspect]
     Indication: PARENTERAL NUTRITION
     Route: 065
     Dates: start: 20140213
  3. 5% SODIUM CHLORIDE INJECTION [Suspect]
     Indication: PARENTERAL NUTRITION
     Route: 065
     Dates: start: 20140213
  4. STERILE WATER FOR INJECTION [Suspect]
     Indication: PARENTERAL NUTRITION
     Route: 065
     Dates: start: 20140213
  5. HEPATAMINE 8% [Suspect]
     Indication: PARENTERAL NUTRITION
     Route: 065
     Dates: start: 20140213
  6. K PHOSPHATE [Suspect]
     Indication: PARENTERAL NUTRITION
     Route: 065
     Dates: start: 20140213
  7. CA GLUCONATE [Suspect]
     Indication: PARENTERAL NUTRITION
     Dosage: 9.03
     Route: 065
     Dates: start: 20140213

REACTIONS (3)
  - Incorrect dosage administered [Unknown]
  - Product compounding quality issue [Unknown]
  - No adverse event [Recovered/Resolved]
